FAERS Safety Report 12254125 (Version 6)
Quarter: 2020Q4

REPORT INFORMATION
  Report Type: Report from Study
  Country: DE (occurrence: DE)
  Receive Date: 20160411
  Receipt Date: 20201229
  Transmission Date: 20210113
  Serious: No
  Sender: FDA-Public Use
  Company Number: DE-SA-2016SA065440

PATIENT
  Age: 27 Year
  Sex: Female
  Weight: 85 kg

DRUGS (2)
  1. ALEMTUZUMAB [Suspect]
     Active Substance: ALEMTUZUMAB
     Indication: RELAPSING-REMITTING MULTIPLE SCLEROSIS
     Dosage: 12 MG, QD
     Route: 041
     Dates: start: 20140818, end: 20140822
  2. ALEMTUZUMAB [Suspect]
     Active Substance: ALEMTUZUMAB
     Dosage: 12 MG, QD
     Route: 041
     Dates: start: 20150824, end: 20150909

REACTIONS (11)
  - Diarrhoea [Unknown]
  - Fatigue [Unknown]
  - Sarcoidosis [Not Recovered/Not Resolved]
  - Joint swelling [Not Recovered/Not Resolved]
  - Rheumatic disorder [Not Recovered/Not Resolved]
  - Lymphadenopathy [Unknown]
  - Hypoaesthesia [Recovering/Resolving]
  - C-reactive protein increased [Unknown]
  - Drug exposure before pregnancy [Unknown]
  - Pyrexia [Unknown]
  - Cubital tunnel syndrome [Recovering/Resolving]

NARRATIVE: CASE EVENT DATE: 201508
